FAERS Safety Report 17284938 (Version 2)
Quarter: 2020Q1

REPORT INFORMATION
  Report Type: Spontaneous
  Country: TH (occurrence: TH)
  Receive Date: 20200117
  Receipt Date: 20200130
  Transmission Date: 20200409
  Serious: Yes (Other)
  Sender: FDA-Public Use
  Company Number: TH-009507513-2001THA004902

PATIENT
  Age: 22 Year
  Sex: Female

DRUGS (1)
  1. IMPLANON NXT [Suspect]
     Active Substance: ETONOGESTREL
     Indication: CONTRACEPTION
     Dosage: 1 IMPLANT
     Route: 059
     Dates: start: 20170209, end: 20200115

REACTIONS (8)
  - Breast engorgement [Recovered/Resolved]
  - Myalgia [Recovered/Resolved]
  - Syncope [Recovered/Resolved]
  - Amenorrhoea [Recovered/Resolved]
  - Pregnancy test false positive [Recovered/Resolved]
  - Vomiting [Recovered/Resolved]
  - Headache [Recovered/Resolved]
  - Amenorrhoea [Recovered/Resolved]

NARRATIVE: CASE EVENT DATE: 2017
